FAERS Safety Report 23036442 (Version 2)
Quarter: 2023Q4

REPORT INFORMATION
  Report Type: Report from Study
  Country: US (occurrence: US)
  Receive Date: 20231006
  Receipt Date: 20231011
  Transmission Date: 20240109
  Serious: No
  Sender: FDA-Public Use
  Company Number: US-002147023-NVSC2023US211199

PATIENT
  Sex: Female
  Weight: 86.168 kg

DRUGS (2)
  1. COSENTYX [Suspect]
     Active Substance: SECUKINUMAB
     Indication: Psoriasis
     Dosage: UNK
     Route: 065
  2. CLOBETASOL [Suspect]
     Active Substance: CLOBETASOL
     Indication: Psoriasis
     Dosage: UNK
     Route: 065

REACTIONS (11)
  - Seborrhoeic keratosis [Unknown]
  - Macule [Unknown]
  - Psoriasis [Unknown]
  - Pruritus [Unknown]
  - Erythema [Unknown]
  - Pain [Unknown]
  - Rash maculo-papular [Unknown]
  - Haemangioma of skin [Unknown]
  - Lentigo [Unknown]
  - Arthritis [Unknown]
  - Skin exfoliation [Unknown]
